FAERS Safety Report 5049369-8 (Version None)
Quarter: 2006Q3

REPORT INFORMATION
  Report Type: 
  Country: None (occurrence: None)
  Receive Date: 20060712
  Receipt Date: 20060706
  Transmission Date: 20061208
  Serious: Yes (Other)
  Sender: FDA-Public Use
  Company Number: JP-JPN-A200602516

PATIENT
  Age: 22 Year
  Sex: Female

DRUGS (3)
  1. PAXIL [Suspect]
     Indication: PANIC DISORDER
     Dosage: 20MG PER DAY
     Route: 048
     Dates: start: 20060703
  2. NAUZELIN [Suspect]
     Route: 065
  3. MEILAX [Concomitant]
     Route: 048

REACTIONS (1)
  - ANAPHYLACTIC SHOCK [None]
